FAERS Safety Report 8431472-3 (Version None)
Quarter: 2012Q2

REPORT INFORMATION
  Report Type: 
  Country: None (occurrence: None)
  Receive Date: 20120613
  Receipt Date: 20120605
  Transmission Date: 20120825
  Serious: Yes (Hospitalization)
  Sender: FDA-Public Use
  Company Number: US-BAYER-2012-030832

PATIENT
  Age: 24 Year
  Sex: Female
  Weight: 77.098 kg

DRUGS (2)
  1. YAZ [Suspect]
     Indication: CONTRACEPTION
     Dosage: UNK
     Route: 048
     Dates: start: 20090501, end: 20100401
  2. YAZ [Suspect]
     Indication: ACNE

REACTIONS (10)
  - NERVOUSNESS [None]
  - CARDIAC MURMUR [None]
  - HEART RATE INCREASED [None]
  - FEAR OF DEATH [None]
  - PULMONARY EMBOLISM [None]
  - PAIN [None]
  - MALAISE [None]
  - DYSPNOEA [None]
  - EMOTIONAL DISTRESS [None]
  - DEPRESSION [None]
